FAERS Safety Report 14853533 (Version 1)
Quarter: 2018Q2

REPORT INFORMATION
  Report Type: Spontaneous
  Country: JP (occurrence: JP)
  Receive Date: 20180507
  Receipt Date: 20180507
  Transmission Date: 20180711
  Serious: Yes (Other)
  Sender: FDA-Public Use
  Company Number: JP-PFIZER INC-2018184736

PATIENT
  Age: 77 Year
  Sex: Female

DRUGS (6)
  1. LYRICA [Suspect]
     Active Substance: PREGABALIN
     Indication: POST HERPETIC NEURALGIA
     Dosage: 75 MG, 2X/DAY
     Route: 048
     Dates: start: 20180323, end: 20180403
  2. ALLOPURINOL. [Concomitant]
     Active Substance: ALLOPURINOL
  3. LUPRAC [Concomitant]
     Active Substance: TORSEMIDE
  4. WARFARIN [Concomitant]
     Active Substance: WARFARIN
  5. BISOPROLOL FUMARATE. [Concomitant]
     Active Substance: BISOPROLOL FUMARATE
  6. NEXIUM [Concomitant]
     Active Substance: ESOMEPRAZOLE MAGNESIUM

REACTIONS (4)
  - Oedema [Recovered/Resolved]
  - Weight increased [Recovered/Resolved]
  - Arrhythmia [Recovered/Resolved]
  - Disease progression [Recovered/Resolved]

NARRATIVE: CASE EVENT DATE: 20180403
